FAERS Safety Report 13972122 (Version 1)
Quarter: 2017Q3

REPORT INFORMATION
  Report Type: Spontaneous
  Country: US (occurrence: None)
  Receive Date: 20170914
  Receipt Date: 20170914
  Transmission Date: 20171128
  Serious: Yes (Hospitalization)
  Sender: FDA-Public Use
  Company Number: None

PATIENT
  Sex: Female

DRUGS (1)
  1. MESNEX [Suspect]
     Active Substance: MESNA
     Dosage: 800 MG 6 HOURS AFTER CYTOXAN DOSE PO
     Route: 048
     Dates: start: 20170831

REACTIONS (10)
  - Constipation [None]
  - Vomiting [None]
  - Headache [None]
  - Fatigue [None]
  - Nausea [None]
  - Abdominal pain [None]
  - Alopecia [None]
  - Somnolence [None]
  - Pyrexia [None]
  - Blood count abnormal [None]
